FAERS Safety Report 11823525 (Version 1)
Quarter: 2015Q4

REPORT INFORMATION
  Report Type: Report from Study
  Country: TR (occurrence: TR)
  Receive Date: 20151210
  Receipt Date: 20151210
  Transmission Date: 20160305
  Serious: Yes (Death)
  Sender: FDA-Public Use
  Company Number: TR-ABBVIE-15K-161-1515647-00

PATIENT
  Age: 77 Year
  Sex: Female
  Weight: 65 kg

DRUGS (3)
  1. HUMIRA [Suspect]
     Active Substance: ADALIMUMAB
     Indication: RHEUMATOID ARTHRITIS
     Route: 058
     Dates: start: 20150526, end: 20150804
  2. ISONIAZIDE [Concomitant]
     Active Substance: ISONIAZID
     Indication: ANTIBIOTIC PROPHYLAXIS
     Route: 048
     Dates: start: 20150526, end: 201508
  3. METHOTREXATE [Suspect]
     Active Substance: METHOTREXATE
     Indication: RHEUMATOID ARTHRITIS
     Route: 048
     Dates: end: 201508

REACTIONS (1)
  - Bone marrow failure [Fatal]

NARRATIVE: CASE EVENT DATE: 201508
